FAERS Safety Report 4829521-4 (Version None)
Quarter: 2005Q4

REPORT INFORMATION
  Report Type: 
  Country: None (occurrence: None)
  Receive Date: 20051116
  Receipt Date: 20051111
  Transmission Date: 20060501
  Serious: Yes (Other)
  Sender: FDA-Public Use
  Company Number: GB-SANOFI-SYNTHELABO-A01200507852

PATIENT
  Age: 62 Year
  Sex: Female

DRUGS (1)
  1. ELOXATIN [Suspect]
     Route: 042

REACTIONS (1)
  - AMAUROSIS FUGAX [None]
